FAERS Safety Report 15396571 (Version 1)
Quarter: 2018Q3

REPORT INFORMATION
  Report Type: Other
  Country: US (occurrence: US)
  Receive Date: 20180918
  Receipt Date: 20180918
  Transmission Date: 20181010
  Serious: No
  Sender: FDA-Public Use
  Company Number: US-LEADIANT BIOSCIENCES INC-2018STPI000205

PATIENT
  Sex: Male

DRUGS (7)
  1. MONTELUKAST [Concomitant]
     Active Substance: MONTELUKAST SODIUM
  2. MATULANE [Suspect]
     Active Substance: PROCARBAZINE HYDROCHLORIDE
     Dosage: 150 MG, UNK
  3. MATULANE [Suspect]
     Active Substance: PROCARBAZINE HYDROCHLORIDE
     Indication: BRAIN NEOPLASM MALIGNANT
     Dosage: 100 MG/15MG, ALTERNATING QD 8 TO 21 OF EACH 8 WEEK CYCLE
     Route: 048
  4. RANITIDINE. [Concomitant]
     Active Substance: RANITIDINE
  5. DILANTIN [Concomitant]
     Active Substance: PHENYTOIN
  6. METOPROLOL. [Concomitant]
     Active Substance: METOPROLOL
  7. ATORVASTATIN [Concomitant]
     Active Substance: ATORVASTATIN

REACTIONS (1)
  - Fatigue [Not Recovered/Not Resolved]
